FAERS Safety Report 24206926 (Version 1)
Quarter: 2024Q3

REPORT INFORMATION
  Report Type: Other
  Country: US (occurrence: US)
  Receive Date: 20240813
  Receipt Date: 20240813
  Transmission Date: 20241016
  Serious: Yes (Hospitalization, Other)
  Sender: BIONPHARMA
  Company Number: US-Bion-013651

PATIENT
  Age: 33 Year
  Sex: Male

DRUGS (19)
  1. DEXAMETHASONE [Suspect]
     Active Substance: DEXAMETHASONE
     Indication: Plasma cell myeloma
  2. BORTEZOMIB [Concomitant]
     Active Substance: BORTEZOMIB
     Indication: Plasma cell myeloma
  3. CYCLOPHOSPHAMIDE [Concomitant]
     Active Substance: CYCLOPHOSPHAMIDE
     Indication: Plasma cell myeloma
  4. DARATUMUMAB [Concomitant]
     Active Substance: DARATUMUMAB
     Indication: Plasma cell myeloma
  5. LENALIDOMIDE [Concomitant]
     Active Substance: LENALIDOMIDE
     Indication: Plasma cell myeloma
  6. VENETOCLAX [Concomitant]
     Active Substance: VENETOCLAX
     Indication: Plasma cell myeloma
  7. IXAZOMIB [Concomitant]
     Active Substance: IXAZOMIB
     Indication: Plasma cell myeloma
  8. ZOLEDRONIC ACID [Concomitant]
     Active Substance: ZOLEDRONIC ACID
     Indication: Plasma cell myeloma
  9. NOREPINEPHRINE [Concomitant]
     Active Substance: NOREPINEPHRINE\NOREPINEPHRINE BITARTRATE
     Indication: Cytokine release syndrome
  10. TOCILIZUMAB [Concomitant]
     Active Substance: TOCILIZUMAB
     Indication: Cytokine release syndrome
  11. DEXAMETHASONE [Suspect]
     Active Substance: DEXAMETHASONE
     Indication: Amyloidosis
  12. DEXAMETHASONE [Suspect]
     Active Substance: DEXAMETHASONE
     Indication: Cytokine release syndrome
  13. DEXAMETHASONE [Suspect]
     Active Substance: DEXAMETHASONE
     Indication: Immune effector cell-associated neurotoxicity syndrome
  14. BORTEZOMIB [Concomitant]
     Active Substance: BORTEZOMIB
     Indication: Amyloidosis
  15. CYCLOPHOSPHAMIDE [Concomitant]
     Active Substance: CYCLOPHOSPHAMIDE
     Indication: Amyloidosis
  16. DARATUMUMAB [Concomitant]
     Active Substance: DARATUMUMAB
     Indication: Amyloidosis
  17. LENALIDOMIDE [Concomitant]
     Active Substance: LENALIDOMIDE
     Indication: Amyloidosis
  18. VENETOCLAX [Concomitant]
     Active Substance: VENETOCLAX
     Indication: Amyloidosis
  19. IXAZOMIB [Concomitant]
     Active Substance: IXAZOMIB
     Indication: Amyloidosis

REACTIONS (5)
  - Neutropenia [Recovering/Resolving]
  - Thrombocytopenia [Recovering/Resolving]
  - Anaemia [Recovering/Resolving]
  - Drug ineffective for unapproved indication [Not Recovered/Not Resolved]
  - Pancytopenia [Unknown]
